FAERS Safety Report 10266217 (Version 1)
Quarter: 2014Q2

REPORT INFORMATION
  Report Type: Report from Study
  Country: MX (occurrence: MX)
  Receive Date: 20140627
  Receipt Date: 20140627
  Transmission Date: 20141212
  Serious: Yes (Other)
  Sender: FDA-Public Use
  Company Number: PHHY2013MX139074

PATIENT
  Age: 83 Year
  Sex: Female

DRUGS (2)
  1. TEGRETOL [Suspect]
     Indication: CEREBRAL HAEMORRHAGE
     Dosage: 0.5 DF, QD  (AT NIGHT)
     Route: 048
  2. TEGRETOL [Suspect]
     Indication: OFF LABEL USE

REACTIONS (12)
  - Parkinson^s disease [Not Recovered/Not Resolved]
  - Fall [Unknown]
  - Convulsion [Not Recovered/Not Resolved]
  - Hip fracture [Unknown]
  - Slow speech [Not Recovered/Not Resolved]
  - Movement disorder [Not Recovered/Not Resolved]
  - Musculoskeletal stiffness [Not Recovered/Not Resolved]
  - Muscle rigidity [Not Recovered/Not Resolved]
  - Hypoacusis [Not Recovered/Not Resolved]
  - Dyskinesia [Not Recovered/Not Resolved]
  - Anaemia [Recovered/Resolved]
  - Memory impairment [Unknown]
